FAERS Safety Report 8769779 (Version 13)
Quarter: 2013Q2

REPORT INFORMATION
  Report Type: Report from Study
  Country: AU (occurrence: AU)
  Receive Date: 20120905
  Receipt Date: 20130422
  Transmission Date: 20140414
  Serious: Yes (Hospitalization, Other)
  Sender: FDA-Public Use
  Company Number: AU-BRISTOL-MYERS SQUIBB COMPANY-16917395

PATIENT
  Age: 70 Year
  Sex: Male

DRUGS (2)
  1. IPILIMUMAB [Suspect]
     Indication: MALIGNANT MELANOMA
     Dosage: 3 VS 10MG/K; INTER ON 14SEP12 (CYCLE 3).
     Route: 042
     Dates: start: 20120720, end: 20120914
  2. HYDROCORTISONE [Concomitant]
     Dates: start: 20121013, end: 20121026

REACTIONS (7)
  - Hypophysitis [Recovered/Resolved]
  - Adrenocortical insufficiency acute [Recovered/Resolved]
  - Syncope [Unknown]
  - Fatigue [Unknown]
  - Dyspnoea [Recovered/Resolved]
  - Diarrhoea [Recovered/Resolved]
  - Dehydration [Recovered/Resolved]
